FAERS Safety Report 7280011-1 (Version None)
Quarter: 2011Q1

REPORT INFORMATION
  Report Type: 
  Country: None (occurrence: None)
  Receive Date: 20110203
  Receipt Date: 20110203
  Transmission Date: 20110831
  Serious: Yes (Hospitalization)
  Sender: FDA-Public Use
  Company Number: None

PATIENT
  Age: 63 Year
  Sex: Male
  Weight: 111 kg

DRUGS (1)
  1. HEPARIN [Suspect]
     Dosage: 500 UNITS PRN IV
     Route: 042
     Dates: start: 20101209, end: 20110108

REACTIONS (1)
  - HEPARIN-INDUCED THROMBOCYTOPENIA [None]
